FAERS Safety Report 8241904-1 (Version None)
Quarter: 2012Q1

REPORT INFORMATION
  Report Type: 
  Country: None (occurrence: None)
  Receive Date: 20120328
  Receipt Date: 20120319
  Transmission Date: 20120608
  Serious: Yes (Death, Hospitalization)
  Sender: FDA-Public Use
  Company Number: US-ACTELION-A-NJ2011-54223

PATIENT

DRUGS (3)
  1. TRACLEER [Suspect]
     Indication: PULMONARY ARTERIAL HYPERTENSION
     Dosage: UNK
     Route: 048
     Dates: start: 20090305
  2. ADCIRCA [Concomitant]
  3. LIPITOR [Concomitant]

REACTIONS (4)
  - OEDEMA PERIPHERAL [None]
  - WOUND TREATMENT [None]
  - DEATH [None]
  - PULMONARY ARTERIAL HYPERTENSION [None]
